FAERS Safety Report 10098591 (Version 5)
Quarter: 2014Q4

REPORT INFORMATION
  Report Type: Spontaneous
  Country: JP (occurrence: JP)
  Receive Date: 20140423
  Receipt Date: 20141027
  Transmission Date: 20150528
  Serious: Yes (Disabling, Other)
  Sender: FDA-Public Use
  Company Number: JP-MPIJNJ-2013JNJ000566

PATIENT

DRUGS (34)
  1. BROTIZOLAM [Concomitant]
     Active Substance: BROTIZOLAM
     Dosage: UNK
     Route: 048
     Dates: start: 20130718, end: 20130906
  2. VELCADE [Suspect]
     Active Substance: BORTEZOMIB
     Dosage: 1.3 MG, UNK
     Route: 058
     Dates: start: 20130830, end: 20130906
  3. SULFAMETHOXAZOLE AND TRIMETHOPRIM [Concomitant]
     Active Substance: SULFAMETHOXAZOLE\TRIMETHOPRIM
     Dosage: UNK
     Route: 048
     Dates: start: 20130718, end: 20130906
  4. BAYASPIRIN [Concomitant]
     Active Substance: ASPIRIN
     Dosage: UNK
     Route: 048
     Dates: start: 20130718, end: 20130906
  5. FLUCONAZOLE. [Concomitant]
     Active Substance: FLUCONAZOLE
     Dosage: UNK
     Route: 048
     Dates: start: 20130718, end: 20130906
  6. GLACTIV [Concomitant]
     Active Substance: SITAGLIPTIN
     Dosage: UNK
     Route: 048
     Dates: start: 20130718, end: 20130906
  7. VELCADE [Suspect]
     Active Substance: BORTEZOMIB
     Indication: PLASMA CELL MYELOMA
     Dosage: 1.0 MG/M2, UNK
     Route: 058
     Dates: start: 20130718, end: 20130718
  8. VELCADE [Suspect]
     Active Substance: BORTEZOMIB
     Dosage: 1.3 MG/M2, UNK
     Route: 058
     Dates: start: 20130725, end: 20130801
  9. BARACLUDE [Concomitant]
     Active Substance: ENTECAVIR
     Dosage: UNK
     Route: 048
     Dates: start: 20130718, end: 20130906
  10. BERIZYM                            /00517401/ [Concomitant]
     Dosage: UNK
     Route: 048
     Dates: start: 20130718, end: 20130906
  11. GASTER [Concomitant]
     Active Substance: FAMOTIDINE
     Dosage: UNK
     Route: 048
     Dates: start: 20130718, end: 20130906
  12. LOXOPROFEN SODIUM [Concomitant]
     Active Substance: LOXOPROFEN SODIUM
     Dosage: UNK
     Route: 048
     Dates: start: 20130718, end: 20130906
  13. MAGMITT [Concomitant]
     Active Substance: MAGNESIUM OXIDE
     Dosage: UNK
     Route: 048
     Dates: start: 20130718, end: 20130906
  14. MEYLON [Concomitant]
     Active Substance: SODIUM BICARBONATE
     Dosage: UNK
     Route: 050
     Dates: start: 20130718, end: 20130906
  15. ZOMETA [Concomitant]
     Active Substance: ZOLEDRONIC ACID
     Dosage: UNK
     Route: 042
     Dates: start: 20130718, end: 20130906
  16. VELCADE [Suspect]
     Active Substance: BORTEZOMIB
     Dosage: 1.0 MG/M2, UNK
     Route: 058
     Dates: start: 20130815, end: 20130823
  17. SODIUM CHLORIDE INJECTION [Concomitant]
     Active Substance: SODIUM CHLORIDE
     Dosage: UNK
     Route: 050
     Dates: start: 20130718, end: 20130906
  18. LASIX [Concomitant]
     Active Substance: FUROSEMIDE
     Dosage: UNK
     Route: 048
     Dates: start: 20130718, end: 20130906
  19. LENADEX [Concomitant]
     Active Substance: DEXAMETHASONE ACETATE
     Dosage: 20 MG, QD
     Route: 048
     Dates: start: 20130718, end: 20130906
  20. SEISHOKU [Concomitant]
     Active Substance: SODIUM CHLORIDE
     Dosage: UNK
     Route: 050
     Dates: start: 20130718, end: 20130906
  21. THALIDOMIDE [Suspect]
     Active Substance: THALIDOMIDE
     Indication: PRODUCT USED FOR UNKNOWN INDICATION
     Dosage: 100 MG, UNK
     Route: 048
     Dates: start: 20130628, end: 20130917
  22. CRAVIT [Concomitant]
     Active Substance: LEVOFLOXACIN
     Dosage: UNK
     Route: 048
     Dates: start: 20130718, end: 20130906
  23. AZUNOL                             /00317302/ [Concomitant]
     Dosage: UNK
     Route: 048
     Dates: start: 20130718, end: 20130906
  24. SENNOSIDE                          /00571901/ [Concomitant]
     Active Substance: SENNOSIDES A AND B
     Dosage: UNK
     Route: 048
     Dates: start: 20130718, end: 20130906
  25. NIPOLAZIN [Concomitant]
     Dosage: UNK
     Route: 048
     Dates: start: 20130718, end: 20130906
  26. FUNGUARD [Concomitant]
     Active Substance: MICAFUNGIN SODIUM
     Dosage: UNK
     Route: 042
     Dates: start: 20130718, end: 20130906
  27. GLUCOSE [Concomitant]
     Active Substance: DEXTROSE
     Dosage: UNK
     Route: 050
     Dates: start: 20130718, end: 20130906
  28. GRAN [Concomitant]
     Active Substance: FILGRASTIM
     Dosage: UNK
     Route: 050
     Dates: start: 20130718, end: 20130906
  29. ACICLOVIR [Concomitant]
     Active Substance: ACYCLOVIR
     Dosage: UNK
     Route: 048
     Dates: start: 20130718, end: 20130906
  30. CATALIN                            /00528801/ [Concomitant]
     Dosage: UNK
     Route: 047
     Dates: start: 20130718, end: 20130906
  31. AMARYL [Concomitant]
     Active Substance: GLIMEPIRIDE
     Dosage: UNK
     Route: 048
     Dates: start: 20130718, end: 20130906
  32. FIRSTCIN [Concomitant]
     Active Substance: CEFOZOPRAN HYDROCHLORIDE
     Dosage: UNK
     Route: 042
     Dates: start: 20130718, end: 20130906
  33. PRIMOBOLAN                         /00044802/ [Concomitant]
     Dosage: UNK
     Route: 048
     Dates: start: 20130718, end: 20130906
  34. VENOGLOBULIN-IH [Concomitant]
     Dosage: UNK
     Route: 042
     Dates: start: 20130718, end: 20130906

REACTIONS (13)
  - Neurogenic bladder [Not Recovered/Not Resolved]
  - Contusion [Recovering/Resolving]
  - Urinary incontinence [Unknown]
  - Nausea [Unknown]
  - Wheezing [Not Recovered/Not Resolved]
  - Activities of daily living impaired [Not Recovered/Not Resolved]
  - Hypocalcaemia [Unknown]
  - Excoriation [Unknown]
  - Hypertonia [Not Recovered/Not Resolved]
  - Neuropathy peripheral [Not Recovered/Not Resolved]
  - Diarrhoea [Unknown]
  - Fall [Unknown]
  - Dysuria [Unknown]

NARRATIVE: CASE EVENT DATE: 20130904
